FAERS Safety Report 8588586-7 (Version None)
Quarter: 2012Q3

REPORT INFORMATION
  Report Type: 
  Country: None (occurrence: None)
  Receive Date: 20120813
  Receipt Date: 20120731
  Transmission Date: 20120928
  Serious: Yes (Hospitalization, Other)
  Sender: FDA-Public Use
  Company Number: DK-JNJFOC-20120508249

PATIENT
  Sex: Female

DRUGS (4)
  1. UNIKALK FORTE [Concomitant]
     Indication: MEDICAL DIET
     Route: 065
  2. REMICADE [Suspect]
     Dosage: STRENGTH: 100 MG
     Route: 042
     Dates: start: 20120419, end: 20120419
  3. PENTASA [Concomitant]
     Indication: COLITIS ULCERATIVE
     Route: 065
  4. REMICADE [Suspect]
     Indication: COLITIS ULCERATIVE
     Dosage: STRENGTH: 100MG
     Route: 042

REACTIONS (9)
  - PRODUCT CONTAMINATION MICROBIAL [None]
  - INFECTION [None]
  - ASTHENIA [None]
  - HYPOTONIA [None]
  - TRANSMISSION OF AN INFECTIOUS AGENT VIA A MEDICINAL PRODUCT [None]
  - VIRAL INFECTION [None]
  - PAIN IN JAW [None]
  - COLITIS ULCERATIVE [None]
  - MYALGIA [None]
